FAERS Safety Report 20431212 (Version 1)
Quarter: 2022Q1

REPORT INFORMATION
  Report Type: Spontaneous
  Country: US (occurrence: US)
  Receive Date: 20220204
  Receipt Date: 20220204
  Transmission Date: 20220423
  Serious: No
  Sender: FDA-Public Use
  Company Number: US-PERRIGO-21US005846

PATIENT
  Age: 46 Year
  Sex: Female
  Weight: 50.34 kg

DRUGS (4)
  1. TRETINOIN [Suspect]
     Active Substance: TRETINOIN
     Indication: Acne
     Dosage: PEA-SIZED AMOUNT, QOD
     Route: 061
     Dates: start: 20210412, end: 20210420
  2. TRETINOIN [Suspect]
     Active Substance: TRETINOIN
     Dosage: PEA-SIZED AMOUNT, NIGHTLY
     Route: 061
     Dates: start: 20210421, end: 20210425
  3. TRETINOIN [Suspect]
     Active Substance: TRETINOIN
     Dosage: PEA-SIZED AMOUNT, QOD
     Route: 061
     Dates: start: 20210426, end: 20210428
  4. EMOLLIENTS [Suspect]
     Active Substance: EMOLLIENTS
     Indication: Dry skin prophylaxis
     Dosage: SMALL AMOUNT, BID
     Route: 061

REACTIONS (4)
  - Application site pruritus [Recovering/Resolving]
  - Application site dryness [Recovering/Resolving]
  - Application site swelling [Recovering/Resolving]
  - Inappropriate schedule of product administration [Recovering/Resolving]

NARRATIVE: CASE EVENT DATE: 20210401
